FAERS Safety Report 8028417-7 (Version None)
Quarter: 2012Q1

REPORT INFORMATION
  Report Type: 
  Country: None (occurrence: None)
  Receive Date: 20120106
  Receipt Date: 20110713
  Transmission Date: 20120608
  Serious: No
  Sender: FDA-Public Use
  Company Number: US-MYLANLABS-2011S1014618

PATIENT
  Age: 76 Year
  Sex: Male

DRUGS (2)
  1. TAMSULOSIN HCL [Concomitant]
     Indication: PROSTATIC DISORDER
  2. FINASTERIDE [Suspect]
     Indication: PROSTATIC DISORDER
     Route: 048
     Dates: start: 20110701

REACTIONS (1)
  - GROIN PAIN [None]
